FAERS Safety Report 20819088 (Version 1)
Quarter: 2022Q2

REPORT INFORMATION
  Report Type: Spontaneous
  Country: US (occurrence: US)
  Receive Date: 20220512
  Receipt Date: 20220512
  Transmission Date: 20220720
  Serious: No
  Sender: FDA-Public Use
  Company Number: US-PFIZER INC-202200592112

PATIENT
  Age: 51 Year
  Sex: Female

DRUGS (1)
  1. IBRANCE [Suspect]
     Active Substance: PALBOCICLIB
     Dosage: TAKE 1 TABLET DAILY ON DAYS 1 THROUGH 21 OF EACH 28 DAY CYCLE
     Dates: end: 202204

REACTIONS (3)
  - Nausea [Unknown]
  - Gastritis [Unknown]
  - Pain [Unknown]
